FAERS Safety Report 21846457 (Version 1)
Quarter: 2023Q1

REPORT INFORMATION
  Report Type: Spontaneous
  Country: US (occurrence: US)
  Receive Date: 20230111
  Receipt Date: 20230111
  Transmission Date: 20230417
  Serious: Yes (Other)
  Sender: FDA-Public Use
  Company Number: US-002147023-NVSC2023US004700

PATIENT
  Sex: Female

DRUGS (3)
  1. DOCETAXEL [Suspect]
     Active Substance: DOCETAXEL
     Indication: Product used for unknown indication
     Dosage: UNK
     Route: 065
     Dates: start: 20210429, end: 20210701
  2. DOCETAXEL [Suspect]
     Active Substance: DOCETAXEL
     Indication: Product used for unknown indication
     Dosage: UNK
     Route: 065
     Dates: start: 20210429, end: 20210701
  3. TAXOTERE [Suspect]
     Active Substance: DOCETAXEL
     Indication: Product used for unknown indication
     Dosage: UNK
     Route: 065
     Dates: start: 20210429, end: 20210701

REACTIONS (3)
  - Lacrimal structure injury [Not Recovered/Not Resolved]
  - Lacrimation increased [Unknown]
  - Injury [Unknown]
